FAERS Safety Report 8886500 (Version 3)
Quarter: 2012Q4

REPORT INFORMATION
  Report Type: 
  Country: US (occurrence: US)
  Receive Date: 20121105
  Receipt Date: 20121217
  Transmission Date: 20130627
  Serious: Yes (Death, Hospitalization, Other)
  Sender: FDA-Public Use
  Company Number: US-JNJFOC-20121102019

PATIENT
  Age: 72 None
  Sex: Male
  Weight: 77.57 kg

DRUGS (18)
  1. XARELTO [Suspect]
     Indication: CEREBROVASCULAR ACCIDENT PROPHYLAXIS
     Route: 048
     Dates: start: 20121002, end: 20121017
  2. XARELTO [Suspect]
     Indication: ATRIAL FIBRILLATION
     Route: 048
     Dates: start: 20121002, end: 20121017
  3. LOSARTAN [Concomitant]
  4. WARFARIN [Concomitant]
  5. WARFARIN [Concomitant]
  6. MESTINON [Concomitant]
  7. VALACYCLOVIR [Concomitant]
  8. SIMVASTATIN [Concomitant]
  9. KCL [Concomitant]
  10. ASA [Concomitant]
  11. FINASTERIDE [Concomitant]
  12. CELLCEPT [Concomitant]
  13. PRINIVIL [Concomitant]
  14. PROTONIX [Concomitant]
  15. DEMADEX [Concomitant]
  16. NORCO [Concomitant]
  17. ADVAIR [Concomitant]
  18. ALBUTEROL [Concomitant]

REACTIONS (3)
  - Death [Fatal]
  - Gastrointestinal haemorrhage [Unknown]
  - Haemoglobin abnormal [Unknown]
